FAERS Safety Report 6077963-4 (Version None)
Quarter: 2009Q1

REPORT INFORMATION
  Report Type: 
  Country: None (occurrence: None)
  Receive Date: 20090210
  Receipt Date: 20090203
  Transmission Date: 20090719
  Serious: Yes (Hospitalization)
  Sender: FDA-Public Use
  Company Number: DSA_32595_2008

PATIENT
  Age: 75 Year
  Sex: Female

DRUGS (8)
  1. ENALAPRIL MALEATE [Suspect]
     Indication: HYPERTENSION
     Dosage: (10 MG QD ORAL)
     Route: 048
     Dates: end: 20030109
  2. EUNERPAN (EUNERPAN - MELPERONE HCL) (NOT SPECIFIED) [Suspect]
     Indication: RESTLESSNESS
     Dosage: (50 MG QD)
     Dates: start: 20030109, end: 20030110
  3. ASPIRIN [Concomitant]
  4. DOGMATIL [Concomitant]
  5. AMARYL [Concomitant]
  6. EXELON /01383201/ [Concomitant]
  7. SORTIS /01326102/ [Concomitant]
  8. CIPRAMIL /00582602/ [Concomitant]

REACTIONS (10)
  - BLOOD GLUCOSE INCREASED [None]
  - BLOOD PRESSURE DIASTOLIC DECREASED [None]
  - BLOOD SODIUM DECREASED [None]
  - BODY TEMPERATURE DECREASED [None]
  - BODY TEMPERATURE INCREASED [None]
  - DRUG INTERACTION [None]
  - FALL [None]
  - LOSS OF CONSCIOUSNESS [None]
  - PULSE ABSENT [None]
  - RESTLESSNESS [None]
